FAERS Safety Report 4351632-0 (Version None)
Quarter: 2004Q2

REPORT INFORMATION
  Report Type: 
  Country: None (occurrence: None)
  Receive Date: 20040503
  Receipt Date: 20040318
  Transmission Date: 20050107
  Serious: Yes (Hospitalization)
  Sender: FDA-Public Use
  Company Number: US-BRISTOL-MYERS SQUIBB COMPANY-12536520

PATIENT
  Age: 29 Year
  Sex: Female
  Weight: 118 kg

DRUGS (3)
  1. EXCEDRIN ES TABS [Suspect]
     Indication: MIGRAINE
     Dosage: DOSAGE: 2 TABS EVERY 4 TO 6 HOURS DAILY
     Route: 048
  2. AMITRIPTYLINE HCL [Concomitant]
     Indication: MIGRAINE
  3. ZOMIG [Concomitant]
     Indication: MIGRAINE

REACTIONS (5)
  - ACQUIRED PYLORIC STENOSIS [None]
  - GASTRIC OUTLET OBSTRUCTION [None]
  - GASTRIC ULCER [None]
  - GASTRITIS [None]
  - GASTROOESOPHAGEAL REFLUX DISEASE [None]
